FAERS Safety Report 4708516-5 (Version None)
Quarter: 2005Q3

REPORT INFORMATION
  Report Type: 
  Country: None (occurrence: None)
  Receive Date: 20050707
  Receipt Date: 20050601
  Transmission Date: 20060218
  Serious: Yes (Other)
  Sender: FDA-Public Use
  Company Number: US-GLAXOSMITHKLINE-A0560779A

PATIENT
  Age: 6 Year
  Sex: Male
  Weight: 29.1 kg

DRUGS (4)
  1. FLOVENT [Suspect]
     Indication: ASTHMA
     Dosage: 2PUFF TWICE PER DAY
     Route: 055
     Dates: start: 20050127, end: 20050228
  2. SINGULAIR [Concomitant]
     Dosage: 5MG PER DAY
     Route: 048
  3. ALBUTEROL [Concomitant]
     Route: 065
  4. ZYRTEC [Concomitant]
     Route: 048

REACTIONS (3)
  - ASTHMA [None]
  - SWELLING FACE [None]
  - WEIGHT INCREASED [None]
